FAERS Safety Report 9028190 (Version 1)
Quarter: 2013Q1

REPORT INFORMATION
  Report Type: Spontaneous
  Country: US (occurrence: None)
  Receive Date: 20130115
  Receipt Date: 20130115
  Transmission Date: 20140127
  Serious: Yes (Life-Threatening, Hospitalization)
  Sender: FDA-Public Use
  Company Number: None

PATIENT
  Age: 62 Year
  Sex: Male
  Weight: 87.4 kg

DRUGS (1)
  1. REGLAN [Suspect]
     Indication: ILEUS
     Dosage: THEN TID IV
     Route: 042
     Dates: start: 20120918, end: 20120923

REACTIONS (2)
  - Serotonin syndrome [None]
  - Neuroleptic malignant syndrome [None]
